FAERS Safety Report 11226943 (Version 5)
Quarter: 2016Q1

REPORT INFORMATION
  Report Type: Report from Study
  Country: JP (occurrence: JP)
  Receive Date: 20150630
  Receipt Date: 20160311
  Transmission Date: 20160525
  Serious: Yes (Death, Hospitalization)
  Sender: FDA-Public Use
  Company Number: JP-AMGEN-JPNCT2015063612

PATIENT
  Age: 58 Year
  Sex: Female
  Weight: 55 kg

DRUGS (15)
  1. DENOTAS [Concomitant]
     Active Substance: CALCIUM CARBONATE\CHOLECALCIFEROL\MAGNESIUM CARBONATE
     Indication: VITAMIN SUPPLEMENTATION
     Dosage: 2 DF, QD AFTER BREAKFAST
     Route: 048
     Dates: start: 20140701
  2. PREDONINE [Concomitant]
     Active Substance: PREDNISOLONE\PREDNISOLONE ACETATE\PREDNISOLONE SODIUM SUCCINATE
     Indication: RHEUMATOID ARTHRITIS
     Dosage: 5 MG, QD AFTER BREAKFAST
     Route: 048
     Dates: start: 20150518
  3. RESTAMIN                           /00000401/ [Concomitant]
     Indication: DERMATITIS CONTACT
     Dosage: ADEQUATE DOSE, AS NEEDED
     Route: 062
     Dates: start: 20140929
  4. DENOSUMAB [Suspect]
     Active Substance: DENOSUMAB
     Indication: RHEUMATOID ARTHRITIS
     Dosage: 60 MG, Q6MO
     Route: 058
     Dates: start: 20140718, end: 20150420
  5. TACROLIMUS. [Suspect]
     Active Substance: TACROLIMUS
     Indication: RHEUMATOID ARTHRITIS
     Dosage: 3 MG, BID AFTER BREAKFAST AND DINNER
     Route: 048
     Dates: start: 20130128
  6. PROGRAF [Concomitant]
     Active Substance: TACROLIMUS\TACROLIMUS ANHYDROUS
     Dosage: UNK
  7. CLIMAGEN [Concomitant]
     Active Substance: FAMOTIDINE
     Indication: GASTRITIS PROPHYLAXIS
     Dosage: 10 MG, BID AFTER BREAKFAST AND DINNER
     Route: 048
     Dates: start: 20130115
  8. TOUCHRON [Concomitant]
     Indication: RHEUMATOID ARTHRITIS
     Dosage: 5 DF, QD
     Route: 062
     Dates: start: 20150323
  9. BAKTAR [Concomitant]
     Active Substance: SULFAMETHOXAZOLE\TRIMETHOPRIM
     Indication: PROPHYLAXIS
     Dosage: 1 DF, AFTER BREAKFAST, THRICE WEEKLY, (MON/WED/FRI)
     Route: 048
     Dates: start: 20150907
  10. BROTIZOLAM [Concomitant]
     Active Substance: BROTIZOLAM
     Indication: INSOMNIA
     Dosage: 0.25 MG, QD, BEFORE BEDTIME
     Route: 048
     Dates: start: 20150805
  11. CELECOX [Concomitant]
     Active Substance: CELECOXIB
     Indication: RHEUMATOID ARTHRITIS
     Dosage: 100 MG, BID AFTER BREAKFAST AND DINNER
     Route: 048
     Dates: start: 2012
  12. DENOTAS [Concomitant]
     Active Substance: CALCIUM CARBONATE\CHOLECALCIFEROL\MAGNESIUM CARBONATE
     Indication: MINERAL SUPPLEMENTATION
  13. ADOAIR [Concomitant]
     Active Substance: FLUTICASONE PROPIONATE\SALMETEROL XINAFOATE
     Indication: ASTHMA
     Dosage: 250 MUG, BID MORNING AND EVENING
     Route: 055
     Dates: start: 20130130
  14. TULOBUTEROL [Concomitant]
     Active Substance: TULOBUTEROL
     Indication: ASTHMA
     Dosage: UNK, QD
     Route: 062
     Dates: start: 20150817
  15. NEORAL [Suspect]
     Active Substance: CYCLOSPORINE
     Indication: RHEUMATOID ARTHRITIS
     Dosage: 150 MG, QD, BEFORE BREAKFAST
     Route: 048
     Dates: start: 20150819

REACTIONS (2)
  - Interstitial lung disease [Recovering/Resolving]
  - Interstitial lung disease [Fatal]

NARRATIVE: CASE EVENT DATE: 20150615
